FAERS Safety Report 10663278 (Version 2)
Quarter: 2015Q1

REPORT INFORMATION
  Report Type: Spontaneous
  Country: IN (occurrence: IN)
  Receive Date: 20141218
  Receipt Date: 20150116
  Transmission Date: 20150720
  Serious: Yes (Other)
  Sender: FDA-Public Use
  Company Number: IN-GILEAD-2014-0126480

PATIENT
  Age: 80 Year
  Sex: Female

DRUGS (9)
  1. IVABRADINE [Suspect]
     Active Substance: IVABRADINE
     Indication: PRODUCT USED FOR UNKNOWN INDICATION
     Dosage: 5 MG, BID
     Route: 048
  2. DILTIAZEM [Suspect]
     Active Substance: DILTIAZEM
     Indication: PRODUCT USED FOR UNKNOWN INDICATION
     Dosage: 90 MG, BID
     Route: 048
  3. NICORANDIL [Concomitant]
     Active Substance: NICORANDIL
  4. FUROSEMIDE. [Concomitant]
     Active Substance: FUROSEMIDE
  5. FONDAPARINUX [Concomitant]
     Active Substance: FONDAPARINUX
  6. CLOPIDOGREL [Concomitant]
     Active Substance: CLOPIDOGREL BISULFATE
  7. ASPIRIN                            /00002701/ [Concomitant]
     Active Substance: ASPIRIN
  8. RANOLAZINE [Suspect]
     Active Substance: RANOLAZINE
     Indication: ANGINA UNSTABLE
     Dosage: 500 MG, BID
     Route: 065
  9. SPIRONOLACTONE. [Concomitant]
     Active Substance: SPIRONOLACTONE

REACTIONS (6)
  - Nodal arrhythmia [Unknown]
  - Off label use [Unknown]
  - Torsade de pointes [Unknown]
  - Heart rate decreased [Recovered/Resolved]
  - Electrocardiogram QT prolonged [Recovered/Resolved]
  - Drug interaction [Recovered/Resolved]
